FAERS Safety Report 8577182-3 (Version None)
Quarter: 2012Q3

REPORT INFORMATION
  Report Type: 
  Country: None (occurrence: None)
  Receive Date: 20120807
  Receipt Date: 20120802
  Transmission Date: 20120928
  Serious: No
  Sender: FDA-Public Use
  Company Number: US-TEVA-352084USA

PATIENT
  Sex: Female
  Weight: 53.572 kg

DRUGS (4)
  1. KLONOPIN [Concomitant]
  2. ATIVAN [Concomitant]
     Indication: CHEST PAIN
     Route: 048
  3. NUVIGIL [Suspect]
     Indication: SLEEP APNOEA SYNDROME
     Route: 048
     Dates: start: 20110101
  4. SUBUTEX [Concomitant]

REACTIONS (2)
  - DRUG EFFECT DECREASED [None]
  - FATIGUE [None]
